FAERS Safety Report 18195611 (Version 1)
Quarter: 2020Q3

REPORT INFORMATION
  Report Type: Report from Study
  Country: DE (occurrence: DE)
  Receive Date: 20200825
  Receipt Date: 20200825
  Transmission Date: 20201103
  Serious: Yes (Hospitalization)
  Sender: FDA-Public Use
  Company Number: DE-BRISTOL-MYERS SQUIBB COMPANY-BMS-2020-067627

PATIENT
  Age: 74 Year
  Sex: Male
  Weight: 75 kg

DRUGS (2)
  1. NIVOLUMAB [Suspect]
     Active Substance: NIVOLUMAB
     Indication: TRANSITIONAL CELL CARCINOMA
     Dosage: 240 MILLIGRAM
     Route: 065
     Dates: start: 20200428
  2. IPILIMUMAB [Suspect]
     Active Substance: IPILIMUMAB
     Indication: TRANSITIONAL CELL CARCINOMA
     Dosage: 280 MILLIGRAM
     Route: 065
     Dates: start: 20200630

REACTIONS (1)
  - Urinary tract infection [Recovered/Resolved]

NARRATIVE: CASE EVENT DATE: 20200806
